FAERS Safety Report 9222387 (Version 1)
Quarter: 2013Q1

REPORT INFORMATION
  Report Type: Spontaneous
  Country: US (occurrence: US)
  Receive Date: 20120911
  Receipt Date: 20120911
  Transmission Date: 20140127
  Serious: Yes (Hospitalization)
  Sender: FDA-Public Use
  Company Number: RB-30023-2011

PATIENT
  Age: 63 Year
  Sex: Female

DRUGS (3)
  1. MUCINEX [Suspect]
     Indication: PRODUCT USED FOR UNKNOWN INDICATION
     Route: 048
  2. FLECAINIDE [Concomitant]
  3. OMEPRAZOLE [Concomitant]

REACTIONS (1)
  - Palpitations [None]
